FAERS Safety Report 19818139 (Version 1)
Quarter: 2021Q3

REPORT INFORMATION
  Report Type: Spontaneous
  Country: US (occurrence: US)
  Receive Date: 20210911
  Receipt Date: 20210911
  Transmission Date: 20211014
  Serious: Yes (Other)
  Sender: FDA-Public Use
  Company Number: US-COOPERSURGICAL, INC.-US-2021CPS002665

PATIENT
  Sex: Female

DRUGS (1)
  1. PARAGARD T 380A [Suspect]
     Active Substance: COPPER
     Indication: PRODUCT USED FOR UNKNOWN INDICATION
     Dosage: UNK
     Route: 015
     Dates: start: 200704

REACTIONS (10)
  - Device use issue [Unknown]
  - Disability [Unknown]
  - Pain [Unknown]
  - Reproductive complication associated with device [Unknown]
  - Injury associated with device [Unknown]
  - Foreign body in reproductive tract [Not Recovered/Not Resolved]
  - Complication of device removal [Not Recovered/Not Resolved]
  - Anxiety [Unknown]
  - Device breakage [Not Recovered/Not Resolved]
  - Deformity [Unknown]

NARRATIVE: CASE EVENT DATE: 200704
